FAERS Safety Report 20292454 (Version 1)
Quarter: 2022Q1

REPORT INFORMATION
  Report Type: Spontaneous
  Country: US (occurrence: None)
  Receive Date: 20220104
  Receipt Date: 20220104
  Transmission Date: 20220423
  Serious: Yes (Other)
  Sender: FDA-Public Use
  Company Number: None

PATIENT
  Sex: Female

DRUGS (5)
  1. ENBREL [Suspect]
     Active Substance: ETANERCEPT
     Indication: Rheumatoid arthritis
     Dosage: ?INJECT 50 MG UNDER THE SKIN ONCE A WEEK
     Route: 058
  2. ACYCLOVIR [Concomitant]
     Active Substance: ACYCLOVIR
  3. ENBREL [Concomitant]
     Active Substance: ETANERCEPT
  4. NEO/POLY/DEX SUS 0.1% [Concomitant]
  5. PHENTERMINE [Concomitant]
     Active Substance: PHENTERMINE

REACTIONS (3)
  - Drug ineffective [None]
  - Intentional dose omission [None]
  - Neoplasm malignant [None]
